FAERS Safety Report 13343912 (Version 1)
Quarter: 2017Q1

REPORT INFORMATION
  Report Type: Spontaneous
  Country: FR (occurrence: FR)
  Receive Date: 20170316
  Receipt Date: 20170316
  Transmission Date: 20170428
  Serious: Yes (Hospitalization)
  Sender: FDA-Public Use
  Company Number: FR-ALLERGAN-1709758US

PATIENT
  Age: 83 Year
  Sex: Female

DRUGS (9)
  1. SECTRAL [Concomitant]
     Active Substance: ACEBUTOLOL HYDROCHLORIDE
     Indication: PRODUCT USED FOR UNKNOWN INDICATION
     Route: 065
  2. OROCAL [Concomitant]
     Active Substance: CALCIUM CARBONATE
     Indication: PRODUCT USED FOR UNKNOWN INDICATION
     Dosage: UNK
     Route: 065
  3. INEXIUM [Concomitant]
     Active Substance: ESOMEPRAZOLE
     Indication: PRODUCT USED FOR UNKNOWN INDICATION
     Route: 065
  4. COTAREG [Concomitant]
     Active Substance: HYDROCHLOROTHIAZIDE\VALSARTAN
     Indication: PRODUCT USED FOR UNKNOWN INDICATION
     Route: 065
  5. ADVIL [Concomitant]
     Active Substance: IBUPROFEN
     Indication: PRODUCT USED FOR UNKNOWN INDICATION
     Route: 065
  6. TROSPIUM CHLORIDE - BP [Suspect]
     Active Substance: TROSPIUM CHLORIDE
     Indication: DYSURIA
     Dosage: 20 MG, UNK
     Route: 048
     Dates: start: 20160826, end: 201609
  7. LERCANIDIPINE [Concomitant]
     Active Substance: LERCANIDIPINE
     Indication: PRODUCT USED FOR UNKNOWN INDICATION
     Route: 065
  8. TROSPIUM CHLORIDE - BP [Suspect]
     Active Substance: TROSPIUM CHLORIDE
     Dosage: 20 MG, UNK
     Route: 048
     Dates: start: 20160603, end: 20160704
  9. LAMALINE [Concomitant]
     Active Substance: ACETAMINOPHEN\CAFFEINE\OPIUM
     Indication: PRODUCT USED FOR UNKNOWN INDICATION
     Dosage: UNK
     Dates: start: 20160818, end: 201609

REACTIONS (4)
  - Fall [Unknown]
  - Fall [Unknown]
  - Spinal cord compression [Unknown]
  - Wrist fracture [Unknown]

NARRATIVE: CASE EVENT DATE: 20160704
